FAERS Safety Report 11650710 (Version 1)
Quarter: 2015Q4

REPORT INFORMATION
  Report Type: Other
  Country: DE (occurrence: DE)
  Receive Date: 20151021
  Receipt Date: 20151021
  Transmission Date: 20160304
  Serious: Yes (Life-Threatening, Hospitalization, Other)
  Sender: FDA-Public Use
  Company Number: DE-MYLANLABS-2015M1034991

PATIENT

DRUGS (8)
  1. DEKRISTOL [Concomitant]
     Active Substance: CHOLECALCIFEROL
     Indication: METASTASES TO BONE
     Dosage: 400 MG, QD (400 MG MILLGRAM(S) EVERY DAYS)
     Route: 048
  2. BISOPROLOL [Concomitant]
     Active Substance: BISOPROLOL
     Indication: HYPERTENSION
     Dosage: 2.5 MG, BID (5 MG MILLGRAM(S) EVERY DAYS)
     Route: 048
  3. PANTOPRAZOL [Concomitant]
     Active Substance: PANTOPRAZOLE SODIUM
     Dosage: 40 MG, QD (40 MG MILLGRAM(S) EVERY DAYS)
     Route: 048
  4. ENZALUTAMID [Concomitant]
     Indication: PROSTATE CANCER
     Dosage: 40 MG, QID (160 MG MILLGRAM(S) EVERY DAYS)
     Route: 048
  5. LEUPRORELIN [Concomitant]
     Active Substance: LEUPROLIDE ACETATE
     Indication: PROSTATE CANCER
     Dosage: UNK
     Route: 058
  6. RAMIPRIL. [Concomitant]
     Active Substance: RAMIPRIL
     Indication: HYPERTENSION
     Dosage: 2.5 MG, BID (5 MG MILLGRAM(S) EVERY DAYS)
     Route: 048
  7. ALLOPURINOL. [Concomitant]
     Active Substance: ALLOPURINOL
     Indication: HYPERURICAEMIA
     Dosage: 100 MG, QD (100 MG MILLGRAM(S) EVERY DAYS)
     Route: 048
  8. ONDANSETRON [Suspect]
     Active Substance: ONDANSETRON
     Indication: NAUSEA
     Dosage: 8 MG, UNK
     Route: 048
     Dates: start: 20151001

REACTIONS (3)
  - Angioedema [Recovering/Resolving]
  - Dyspnoea [Recovering/Resolving]
  - Oropharyngeal swelling [Recovering/Resolving]

NARRATIVE: CASE EVENT DATE: 20151001
